FAERS Safety Report 15144000 (Version 2)
Quarter: 2018Q3

REPORT INFORMATION
  Report Type: Spontaneous
  Country: JP (occurrence: JP)
  Receive Date: 20180713
  Receipt Date: 20180819
  Transmission Date: 20181010
  Serious: Yes (Life-Threatening, Hospitalization, Other)
  Sender: FDA-Public Use
  Company Number: JP-SHIRE-JP201823895AA

PATIENT
  Age: 75 Year
  Sex: Female
  Weight: 44 kg

DRUGS (10)
  1. FEIBA NF [Suspect]
     Active Substance: ANTI-INHIBITOR COAGULANT COMPLEX
     Indication: HAEMOSTASIS
  2. NOVOSEVEN [Concomitant]
     Active Substance: COAGULATION FACTOR VIIA RECOMBINANT HUMAN
     Indication: HAEMOSTASIS
     Dosage: 2 MG, 3X/DAY:TID
     Dates: start: 20180402, end: 20180402
  3. PREDNISOLONE. [Concomitant]
     Active Substance: PREDNISOLONE
     Indication: PEMPHIGOID
     Dosage: 15 MG/DAY
     Route: 065
  4. PREDNISOLONE. [Concomitant]
     Active Substance: PREDNISOLONE
     Dosage: 20 MG, 1X/DAY:QD
     Route: 048
  5. NOVOSEVEN [Concomitant]
     Active Substance: COAGULATION FACTOR VIIA RECOMBINANT HUMAN
     Dosage: 2 MG, 3X/DAY:TID
     Dates: start: 20180404, end: 20180404
  6. METHYLPREDNISOLONE                 /00049602/ [Concomitant]
     Active Substance: METHYLPREDNISOLONE
     Indication: ACQUIRED HAEMOPHILIA
     Dosage: 375 MG/DAY
     Route: 065
  7. METHYLPREDNISOLONE                 /00049602/ [Concomitant]
     Active Substance: METHYLPREDNISOLONE
     Indication: PEMPHIGOID
  8. FEIBA NF [Suspect]
     Active Substance: ANTI-INHIBITOR COAGULANT COMPLEX
     Indication: ACQUIRED HAEMOPHILIA
     Dosage: 2000 IU/DOSE FOR 2 DAYS, 3000 IU/DOSE FOR 2 DAYS
     Route: 042
     Dates: start: 20180402, end: 20180408
  9. PREDNISOLONE. [Concomitant]
     Active Substance: PREDNISOLONE
     Indication: ACQUIRED HAEMOPHILIA
     Dosage: 50 MG, UNK
     Route: 048
  10. NOVOSEVEN [Concomitant]
     Active Substance: COAGULATION FACTOR VIIA RECOMBINANT HUMAN
     Indication: ACQUIRED HAEMOPHILIA
     Dosage: 2 MG, 3X/DAY:TID
     Route: 065
     Dates: start: 201803, end: 201804

REACTIONS (8)
  - Gastrointestinal haemorrhage [Recovered/Resolved]
  - Bone marrow failure [Recovered/Resolved]
  - Acute myocardial infarction [Recovering/Resolving]
  - Cytomegalovirus enterocolitis [Recovered/Resolved]
  - Shock haemorrhagic [Recovered/Resolved]
  - Anti factor VIII antibody increased [Recovering/Resolving]
  - Activated partial thromboplastin time prolonged [Recovering/Resolving]
  - Haemorrhage [Recovered/Resolved]

NARRATIVE: CASE EVENT DATE: 20180404
